FAERS Safety Report 9439937 (Version 1)
Quarter: 2013Q3

REPORT INFORMATION
  Report Type: Spontaneous
  Country: IT (occurrence: IT)
  Receive Date: 20130805
  Receipt Date: 20130805
  Transmission Date: 20140515
  Serious: Yes (Death)
  Sender: FDA-Public Use
  Company Number: IT-GENZYME-CERZ-1003108

PATIENT
  Age: 60 Year
  Sex: Female

DRUGS (1)
  1. CEREZYME [Suspect]
     Indication: GAUCHER^S DISEASE
     Dosage: 2000 U, Q2W
     Route: 042
     Dates: end: 201306

REACTIONS (1)
  - Cardiac disorder [Fatal]
